FAERS Safety Report 18617785 (Version 1)
Quarter: 2020Q4

REPORT INFORMATION
  Report Type: Report from Study
  Country: IT (occurrence: IT)
  Receive Date: 20201215
  Receipt Date: 20201215
  Transmission Date: 20210114
  Serious: Yes (Other)
  Sender: FDA-Public Use
  Company Number: IT-TEVA-2020-IT-1857388

PATIENT
  Age: 49 Year
  Sex: Female

DRUGS (2)
  1. LORAZEPAM. [Suspect]
     Active Substance: LORAZEPAM
     Indication: DRUG ABUSE
     Dosage: 10 MG
     Route: 048
     Dates: start: 20201005, end: 20201005
  2. BROTIZOLAM [Suspect]
     Active Substance: BROTIZOLAM
     Indication: DRUG ABUSE
     Dosage: 2.5  MG
     Route: 048
     Dates: start: 20201005, end: 20201005

REACTIONS (5)
  - Hypokinesia [Recovered/Resolved]
  - Sopor [Recovered/Resolved]
  - Nausea [Recovered/Resolved]
  - Bradyphrenia [Recovered/Resolved]
  - Drug abuse [Recovered/Resolved]

NARRATIVE: CASE EVENT DATE: 20201005
